FAERS Safety Report 24985888 (Version 1)
Quarter: 2025Q1

REPORT INFORMATION
  Report Type: Spontaneous
  Country: IT (occurrence: IT)
  Receive Date: 20250219
  Receipt Date: 20250219
  Transmission Date: 20250409
  Serious: Yes (Hospitalization)
  Sender: PFIZER
  Company Number: None

PATIENT
  Age: 68 Year
  Sex: Female

DRUGS (5)
  1. PANTOPRAZOLE [Suspect]
     Active Substance: PANTOPRAZOLE
     Indication: Chronic gastritis
     Dosage: 40 MILLIGRAM, QD
     Route: 048
     Dates: end: 20250125
  2. HYDROCHLOROTHIAZIDE\VALSARTAN [Concomitant]
     Active Substance: HYDROCHLOROTHIAZIDE\VALSARTAN
     Indication: Hypertension
     Dosage: UNK UNK, 1X/DAY
     Route: 048
  3. BARNIDIPINE HYDROCHLORIDE [Concomitant]
     Active Substance: BARNIDIPINE HYDROCHLORIDE
     Indication: Essential hypertension
     Dosage: 10 MILLIGRAM, QD
     Route: 048
  4. EN [Concomitant]
     Active Substance: DELORAZEPAM
     Indication: Anxiety
     Dosage: UNK UNK, 3X/DAY
     Route: 048
  5. MIRTAZAPINE [Concomitant]
     Active Substance: MIRTAZAPINE
     Indication: Major depression
     Dosage: 30 MILLIGRAM, QD
     Route: 048

REACTIONS (3)
  - Chest pain [Recovering/Resolving]
  - Malaise [Recovering/Resolving]
  - Diarrhoea [Recovering/Resolving]

NARRATIVE: CASE EVENT DATE: 20250125
